FAERS Safety Report 5412817-5 (Version None)
Quarter: 2007Q3

REPORT INFORMATION
  Report Type: 
  Country: None (occurrence: None)
  Receive Date: 20070713
  Receipt Date: 20070510
  Transmission Date: 20080115
  Serious: No
  Sender: FDA-Public Use
  Company Number: 2007SP001742

PATIENT
  Age: 40 Year
  Sex: Male
  Weight: 95.2554 kg

DRUGS (4)
  1. LUNESTA [Suspect]
     Indication: INSOMNIA
     Dosage: 3 MG; 1X; ORAL
     Route: 048
     Dates: start: 20070510, end: 20070510
  2. CYMBALTA [Concomitant]
  3. KLONOPIN [Concomitant]
  4. SEROQUEL [Concomitant]

REACTIONS (4)
  - DYSGEUSIA [None]
  - HEADACHE [None]
  - INITIAL INSOMNIA [None]
  - MIGRAINE [None]
